FAERS Safety Report 13514820 (Version 1)
Quarter: 2017Q2

REPORT INFORMATION
  Report Type: Spontaneous
  Country: US (occurrence: US)
  Receive Date: 20170504
  Receipt Date: 20170504
  Transmission Date: 20170830
  Serious: No
  Sender: FDA-Public Use
  Company Number: GXBR2017US001414

PATIENT
  Sex: Female
  Weight: 81.63 kg

DRUGS (4)
  1. DICLOFENAC SODIUM D.R. TABLETS USP [Suspect]
     Active Substance: DICLOFENAC SODIUM
     Indication: RAPIDLY PROGRESSIVE OSTEOARTHRITIS
     Dosage: 75 MG, UNK
     Route: 048
     Dates: start: 201702, end: 201703
  2. MULTI VIT [Concomitant]
     Dosage: UNK DF, UNK
  3. VITAMIN C [Concomitant]
     Active Substance: ASCORBIC ACID
     Dosage: UNK DF, UNK
  4. LOSARTAN. [Concomitant]
     Active Substance: LOSARTAN
     Indication: HYPERTENSION
     Dosage: UNK DF, UNK

REACTIONS (3)
  - Blister [Recovered/Resolved]
  - Pain [Recovered/Resolved]
  - Crying [Recovered/Resolved]
